FAERS Safety Report 4531024-1 (Version None)
Quarter: 2005Q1

REPORT INFORMATION
  Report Type: 
  Country: None (occurrence: None)
  Receive Date: 20041202
  Receipt Date: 20041014
  Transmission Date: 20050727
  Serious: No
  Sender: FDA-Public Use
  Company Number: 200420840BWH

PATIENT
  Age: 67 Year
  Sex: Male

DRUGS (3)
  1. LEVITRA [Suspect]
     Indication: ERECTILE DYSFUNCTION
     Dosage: 20 MG, OW, ORAL
     Route: 048
     Dates: start: 20040601
  2. GLUCOPHAGE [Concomitant]
  3. MULTIVITAMIN [Concomitant]

REACTIONS (1)
  - PROSTATIC SPECIFIC ANTIGEN INCREASED [None]
